FAERS Safety Report 8204175-8 (Version None)
Quarter: 2012Q1

REPORT INFORMATION
  Report Type: 
  Country: None (occurrence: None)
  Receive Date: 20120309
  Receipt Date: 20120305
  Transmission Date: 20120608
  Serious: Yes (Other)
  Sender: FDA-Public Use
  Company Number: 2012MA003015

PATIENT
  Age: 84 Year
  Sex: Female

DRUGS (3)
  1. DOXYCYCLINE HYCLATE [Suspect]
     Indication: DENTAL OPERATION
  2. LEVOTHYROXINE SODIUM [Concomitant]
  3. ASPIRIN [Concomitant]

REACTIONS (2)
  - CUTANEOUS LUPUS ERYTHEMATOSUS [None]
  - FATIGUE [None]
